FAERS Safety Report 22616970 (Version 1)
Quarter: 2023Q2

REPORT INFORMATION
  Report Type: Spontaneous
  Country: CH (occurrence: CH)
  Receive Date: 20230619
  Receipt Date: 20230619
  Transmission Date: 20230721
  Serious: Yes (Hospitalization)
  Sender: FDA-Public Use
  Company Number: CH-MALLINCKRODT-MNK202302449

PATIENT
  Age: 50 Year
  Sex: Male

DRUGS (4)
  1. UVADEX [Suspect]
     Active Substance: METHOXSALEN
     Indication: Chronic graft versus host disease in skin
     Dosage: UNKNOWN
     Route: 050
     Dates: start: 202302
  2. UVADEX [Suspect]
     Active Substance: METHOXSALEN
     Indication: Chronic graft versus host disease in lung
  3. UVADEX [Suspect]
     Active Substance: METHOXSALEN
     Indication: Chronic graft versus host disease in intestine
  4. ANTICOAGULANT CITRATE DEXTROSE SOLUTION (ACD) NOS [Concomitant]
     Active Substance: CITRIC ACID MONOHYDRATE\DEXTROSE\SODIUM CITRATE
     Dosage: UNKNOWN

REACTIONS (7)
  - Pneumonia klebsiella [Unknown]
  - Generalised oedema [Not Recovered/Not Resolved]
  - Oxygen therapy [Unknown]
  - Pulmonary embolism [Unknown]
  - Condition aggravated [Unknown]
  - Restlessness [Unknown]
  - Product use in unapproved indication [Unknown]

NARRATIVE: CASE EVENT DATE: 20230201
